FAERS Safety Report 9636758 (Version 1)
Quarter: 2013Q4

REPORT INFORMATION
  Report Type: Other
  Country: DE (occurrence: DE)
  Receive Date: 20131022
  Receipt Date: 20131022
  Transmission Date: 20140711
  Serious: Yes (Congenital Anomaly, Other)
  Sender: FDA-Public Use
  Company Number: DE-LUPIN PHARMACEUTICALS INC.-E2B_00001360

PATIENT
  Age: 1 Day
  Sex: Male
  Weight: 3.95 kg

DRUGS (2)
  1. LAMOTRIGIN [Suspect]
     Indication: EPILEPSY
     Route: 064
  2. LAMOTRIGIN [Suspect]
     Route: 064

REACTIONS (2)
  - Polydactyly [Recovered/Resolved with Sequelae]
  - Foetal exposure during pregnancy [Unknown]
